FAERS Safety Report 8491739-X (Version None)
Quarter: 2012Q3

REPORT INFORMATION
  Report Type: 
  Country: None (occurrence: None)
  Receive Date: 20120706
  Receipt Date: 20120626
  Transmission Date: 20120928
  Serious: Yes (Hospitalization)
  Sender: FDA-Public Use
  Company Number: FR-BRISTOL-MYERS SQUIBB COMPANY-16717522

PATIENT
  Age: 77 Year
  Sex: Female
  Weight: 82 kg

DRUGS (1)
  1. YERVOY [Suspect]
     Indication: MALIGNANT MELANOMA
     Dosage: NO OF INF 3 3RD INJ: 21JUN12

REACTIONS (1)
  - OEDEMA PERIPHERAL [None]
